FAERS Safety Report 9792519 (Version 3)
Quarter: 2014Q2

REPORT INFORMATION
  Report Type: Spontaneous
  Country: US (occurrence: US)
  Receive Date: 20140102
  Receipt Date: 20140520
  Transmission Date: 20141212
  Serious: Yes (Hospitalization)
  Sender: FDA-Public Use
  Company Number: US-BAYER-2013-158557

PATIENT
  Age: 36 Year
  Sex: Female
  Weight: 73 kg

DRUGS (3)
  1. MIRENA [Suspect]
     Indication: CONTRACEPTION
     Dosage: 20 MCG/24HR, CONT
     Route: 015
     Dates: start: 200209, end: 20050408
  2. MIRENA [Suspect]
     Indication: CONTRACEPTION
     Dosage: 20 MCG/24HR, CONT
     Route: 015
     Dates: start: 20060427, end: 20060428
  3. TEGRETOL [Concomitant]
     Indication: CONVULSION
     Dosage: UNK
     Dates: start: 2000

REACTIONS (6)
  - Uterine perforation [None]
  - Injury [None]
  - Medical device discomfort [None]
  - Medical device pain [None]
  - Device misuse [None]
  - Emotional distress [None]
